FAERS Safety Report 9964255 (Version 1)
Quarter: 2014Q1

REPORT INFORMATION
  Report Type: Spontaneous
  Country: DE (occurrence: DE)
  Receive Date: 20140305
  Receipt Date: 20140305
  Transmission Date: 20141002
  Serious: Yes (Other)
  Sender: FDA-Public Use
  Company Number: DE-SA-2014SA022714

PATIENT
  Sex: 0

DRUGS (2)
  1. AUBAGIO [Suspect]
     Indication: MULTIPLE SCLEROSIS
     Route: 048
     Dates: start: 20131120, end: 20140218
  2. PREDNISOLON [Concomitant]
     Indication: MULTIPLE SCLEROSIS RELAPSE
     Route: 041

REACTIONS (3)
  - Pancreatitis [Not Recovered/Not Resolved]
  - Abdominal discomfort [Not Recovered/Not Resolved]
  - Lipase increased [Not Recovered/Not Resolved]
